FAERS Safety Report 18519515 (Version 4)
Quarter: 2021Q2

REPORT INFORMATION
  Report Type: Spontaneous
  Country: US (occurrence: US)
  Receive Date: 20201118
  Receipt Date: 20210518
  Transmission Date: 20210717
  Serious: Yes (Other)
  Sender: FDA-Public Use
  Company Number: US-PFIZER INC-2020454000

PATIENT
  Age: 38 Year
  Sex: Female

DRUGS (2)
  1. IBRANCE [Suspect]
     Active Substance: PALBOCICLIB
     Dosage: 100 MG
     Dates: start: 20200110, end: 20210503
  2. IBRANCE [Suspect]
     Active Substance: PALBOCICLIB
     Dosage: UNK
     Dates: start: 202007, end: 20201116

REACTIONS (7)
  - Second primary malignancy [Unknown]
  - Cough [Unknown]
  - Sarcoma [Unknown]
  - Neoplasm progression [Unknown]
  - Dyspnoea [Unknown]
  - Nausea [Unknown]
  - Fatigue [Unknown]
